FAERS Safety Report 9378848 (Version 1)
Quarter: 2013Q3

REPORT INFORMATION
  Report Type: Spontaneous
  Country: US (occurrence: US)
  Receive Date: 20130702
  Receipt Date: 20130702
  Transmission Date: 20140515
  Serious: No
  Sender: FDA-Public Use
  Company Number: US-PFIZER INC-2013192142

PATIENT
  Age: 54 Year
  Sex: Female
  Weight: 63.49 kg

DRUGS (3)
  1. ARTHROTEC [Suspect]
     Indication: PSORIATIC ARTHROPATHY
     Dosage: UNK, 1X/DAY
  2. NEURONTIN [Suspect]
     Indication: NEUROPATHY PERIPHERAL
     Dosage: UNK
  3. HYDROCODONE W/ACETAMINOPHEN [Suspect]

REACTIONS (2)
  - Sciatica [Unknown]
  - Headache [Not Recovered/Not Resolved]
